FAERS Safety Report 4783620-4 (Version None)
Quarter: 2005Q3

REPORT INFORMATION
  Report Type: 
  Country: None (occurrence: None)
  Receive Date: 20050929
  Receipt Date: 20050921
  Transmission Date: 20060218
  Serious: Yes (Hospitalization)
  Sender: FDA-Public Use
  Company Number: PHBS2005JP14037

PATIENT
  Age: 64 Year
  Sex: Male

DRUGS (1)
  1. TEGRETOL [Suspect]
     Route: 048
     Dates: start: 20050826

REACTIONS (7)
  - DISSEMINATED INTRAVASCULAR COAGULATION [None]
  - DRUG ERUPTION [None]
  - GENERALISED ERYTHEMA [None]
  - HEPATIC FUNCTION ABNORMAL [None]
  - PANCYTOPENIA [None]
  - PYREXIA [None]
  - VOMITING [None]
